FAERS Safety Report 4432657-3 (Version None)
Quarter: 2004Q3

REPORT INFORMATION
  Report Type: 
  Country: None (occurrence: None)
  Receive Date: 20040825
  Receipt Date: 20040818
  Transmission Date: 20050211
  Serious: Yes (Disabling)
  Sender: FDA-Public Use
  Company Number: PHNU2004DE02935

PATIENT

DRUGS (12)
  1. CAFERGOT PB [Suspect]
     Route: 064
     Dates: start: 19880101, end: 19880101
  2. VALIUM [Concomitant]
     Route: 064
  3. HEPARIN [Concomitant]
     Route: 064
  4. TRAMAL [Concomitant]
     Route: 064
  5. PARTUSISTEN [Concomitant]
     Route: 064
  6. TEMGESIC ^ESSEX PHARMA^ [Concomitant]
     Route: 064
  7. MAGNESIUM [Concomitant]
     Route: 064
  8. STEROFUNDIN [Concomitant]
     Route: 064
  9. MEZLOCILLIN [Concomitant]
     Route: 064
  10. ACETAMINOPHEN [Concomitant]
     Route: 064
  11. CELESTAN [Concomitant]
     Route: 064
  12. ACETYLSALICYLIC ACID [Concomitant]
     Route: 064

REACTIONS (5)
  - ACIDOSIS [None]
  - BRAIN DAMAGE [None]
  - DRUG EXPOSURE DURING PREGNANCY [None]
  - GENERAL PHYSICAL HEALTH DETERIORATION [None]
  - HYPOXIA [None]
